FAERS Safety Report 8172716-5 (Version None)
Quarter: 2012Q1

REPORT INFORMATION
  Report Type: 
  Country: None (occurrence: None)
  Receive Date: 20120229
  Receipt Date: 20120216
  Transmission Date: 20120608
  Serious: Yes (Other)
  Sender: FDA-Public Use
  Company Number: GB-RANBAXY-2012RR-52879

PATIENT
  Age: 89 Year
  Sex: Female

DRUGS (4)
  1. TAZOBACTAM [Concomitant]
     Indication: URINARY TRACT INFECTION
     Dosage: UNK
     Route: 065
  2. FLUOXETINE [Suspect]
     Indication: PRODUCT USED FOR UNKNOWN INDICATION
     Dosage: 20 MG/DAY
     Route: 048
  3. PIPERACILLIN [Concomitant]
     Indication: URINARY TRACT INFECTION
     Dosage: UNK
     Route: 065
  4. CLARITHROMYCIN [Interacting]
     Indication: RESPIRATORY TRACT INFECTION
     Dosage: UNK
     Route: 048

REACTIONS (2)
  - DRUG INTERACTION [None]
  - SEROTONIN SYNDROME [None]
